FAERS Safety Report 8920866 (Version 1)
Quarter: 2012Q4

REPORT INFORMATION
  Report Type: 
  Country: US (occurrence: US)
  Receive Date: 20121122
  Receipt Date: 20121122
  Transmission Date: 20130627
  Serious: Yes (Other)
  Sender: FDA-Public Use
  Company Number: US-PFIZER INC-2012291493

PATIENT
  Age: 43 Year
  Sex: Male
  Weight: 81.63 kg

DRUGS (2)
  1. VIAGRA [Suspect]
     Indication: ERECTILE DYSFUNCTION
     Dosage: 100 mg, as needed
     Route: 048
     Dates: start: 20121113
  2. IBUPROFEN [Concomitant]
     Indication: HEADACHE
     Dosage: UNK, as needed

REACTIONS (1)
  - Priapism [Unknown]
